FAERS Safety Report 4685993-X (Version None)
Quarter: 2005Q2

REPORT INFORMATION
  Report Type: 
  Country: None (occurrence: None)
  Receive Date: 20050607
  Receipt Date: 20050607
  Transmission Date: 20051028
  Serious: Yes (Death)
  Sender: FDA-Public Use
  Company Number: None

PATIENT
  Age: 78 Year
  Sex: Male
  Weight: 80 kg

DRUGS (3)
  1. ENOXAPARIN 80MG/0.8 ML AVENTIS [Suspect]
     Indication: ATRIAL FIBRILLATION
     Dosage: 80 MG BID SUBCUTANEOUS
     Route: 058
     Dates: start: 20040305, end: 20050314
  2. CLOPIDGREL  75MG  BRISTOL MEYERS SQUIBB [Suspect]
     Indication: CORONARY ARTERIAL STENT INSERTION
     Dosage: 75MG DAILY ORAL
     Route: 048
     Dates: start: 20050201, end: 20050314
  3. ASPIRIN [Concomitant]

REACTIONS (10)
  - ATRIAL FIBRILLATION [None]
  - HAEMATOCRIT DECREASED [None]
  - HAEMODIALYSIS [None]
  - HAEMOGLOBIN DECREASED [None]
  - HYPOTENSION [None]
  - MALAISE [None]
  - MULTI-ORGAN FAILURE [None]
  - PULMONARY OEDEMA [None]
  - RESPIRATORY DISTRESS [None]
  - RETROPERITONEAL HAEMORRHAGE [None]
